FAERS Safety Report 4976119-3 (Version None)
Quarter: 2006Q2

REPORT INFORMATION
  Report Type: 
  Country: None (occurrence: None)
  Receive Date: 20060411
  Receipt Date: 20060324
  Transmission Date: 20061013
  Serious: Yes (Hospitalization, Other)
  Sender: FDA-Public Use
  Company Number: L06-USA-01021-01

PATIENT
  Age: 41 Year
  Sex: Female

DRUGS (1)
  1. ESCITALOPRAM OXALATE [Suspect]
     Indication: MAJOR DEPRESSION
     Dosage: 10 MG QD

REACTIONS (6)
  - CONDITION AGGRAVATED [None]
  - DEPRESSED MOOD [None]
  - DRY MOUTH [None]
  - DYSTONIA [None]
  - SUICIDAL IDEATION [None]
  - WEIGHT DECREASED [None]
